FAERS Safety Report 15664380 (Version 3)
Quarter: 2021Q1

REPORT INFORMATION
  Report Type: Other
  Country: AT (occurrence: AT)
  Receive Date: 20181128
  Receipt Date: 20210318
  Transmission Date: 20210419
  Serious: Yes (Hospitalization)
  Sender: FDA-Public Use
  Company Number: AT-ROCHE-2220666

PATIENT
  Age: 71 Year
  Sex: Female
  Weight: 91 kg

DRUGS (23)
  1. TRASTUZUMAB. [Suspect]
     Active Substance: TRASTUZUMAB
     Indication: BREAST CANCER
     Dosage: MOST RECENT DOSE PRIOR TO THE EVENT: 16/OCT/2018 (546 MG)
     Route: 042
     Dates: start: 20180904
  2. ENTEROBENE [Concomitant]
     Dates: start: 20180925, end: 20181106
  3. ANAEROBEX [Concomitant]
     Active Substance: METRONIDAZOLE
     Indication: PYREXIA
     Dates: start: 20181016, end: 20181101
  4. DIBONDRIN [Concomitant]
     Active Substance: DIPHENHYDRAMINE HYDROCHLORIDE
     Dates: start: 20180904, end: 20181106
  5. PANTOPRAZOL [Concomitant]
     Active Substance: PANTOPRAZOLE SODIUM
     Dates: start: 20180905
  6. LETROZOLE. [Suspect]
     Active Substance: LETROZOLE
     Indication: BREAST CANCER
     Dosage: O.D. ? ONCE DAILY
     Route: 048
     Dates: start: 20190121
  7. PERTUZUMAB. [Suspect]
     Active Substance: PERTUZUMAB
     Indication: BREAST CANCER
     Dosage: MOST RECENT DOSE PRIOR TO THE EVENT: 16/OCT/2018 (420 MG)
     Route: 042
     Dates: start: 20180904
  8. ZOFRAN [Concomitant]
     Active Substance: ONDANSETRON HYDROCHLORIDE
     Dates: start: 20180905
  9. FORTECORTIN [Concomitant]
     Active Substance: DEXAMETHASONE
     Dates: start: 20180905, end: 20181106
  10. LONQUEX [Concomitant]
     Active Substance: LIPEGFILGRASTIM
     Dates: start: 20180906, end: 20181108
  11. BISOPROLOL [Concomitant]
     Active Substance: BISOPROLOL
  12. THROMBO ASS [Concomitant]
     Active Substance: ASPIRIN
  13. FORTECORTIN [Concomitant]
     Active Substance: DEXAMETHASONE
     Dates: start: 20180904, end: 20181106
  14. ZOFRAN [Concomitant]
     Active Substance: ONDANSETRON HYDROCHLORIDE
     Dates: start: 20180905, end: 20181106
  15. DOCETAXEL. [Suspect]
     Active Substance: DOCETAXEL
     Indication: BREAST CANCER
     Dosage: MOST RECENT DOSE PRIOR TO THE EVENT: 16/OCT/2018 (111.38 MG)
     Route: 042
     Dates: start: 20180904
  16. EUTHYROX [Concomitant]
     Active Substance: LEVOTHYROXINE SODIUM
     Dates: start: 20180904
  17. LISINOCOMP [Concomitant]
     Active Substance: HYDROCHLOROTHIAZIDE\LISINOPRIL
     Dosage: ONGOING = CHECKED
     Dates: start: 20180904
  18. MEXALEN [Concomitant]
     Active Substance: ACETAMINOPHEN
     Dates: start: 20180905, end: 20181106
  19. OSPEN [Concomitant]
     Active Substance: PENICILLIN V
     Dates: start: 20181004, end: 20181008
  20. ZOFRAN [Concomitant]
     Active Substance: ONDANSETRON HYDROCHLORIDE
     Dates: start: 20180904, end: 20181106
  21. BEPANTHENE [Concomitant]
     Active Substance: DEXPANTHENOL
     Dates: start: 20180905, end: 20181106
  22. FORLAX [Concomitant]
     Active Substance: POLYETHYLENE GLYCOL 4000
     Dates: start: 20180905, end: 20181106
  23. EMEND [Concomitant]
     Active Substance: APREPITANT
     Dates: start: 20180906, end: 20181106

REACTIONS (1)
  - Anaphylactic shock [Recovered/Resolved]

NARRATIVE: CASE EVENT DATE: 20181106
